FAERS Safety Report 7907868-2 (Version None)
Quarter: 2011Q4

REPORT INFORMATION
  Report Type: 
  Country: None (occurrence: None)
  Receive Date: 20111110
  Receipt Date: 20100719
  Transmission Date: 20120403
  Serious: No
  Sender: FDA-Public Use
  Company Number: US-BAYER-201030851NA

PATIENT
  Sex: Female

DRUGS (2)
  1. CLIMARA [Suspect]
     Route: 062
  2. CLIMARA [Suspect]
     Route: 062

REACTIONS (2)
  - PRODUCT ADHESION ISSUE [None]
  - HORMONE LEVEL ABNORMAL [None]
